FAERS Safety Report 8091911-7 (Version None)
Quarter: 2012Q1

REPORT INFORMATION
  Report Type: 
  Country: None (occurrence: None)
  Receive Date: 20120129
  Receipt Date: 20111205
  Transmission Date: 20120608
  Serious: No
  Sender: FDA-Public Use
  Company Number: US-ABBOTT-11P-163-0881153-00

PATIENT
  Age: 75 Year
  Sex: Female

DRUGS (6)
  1. METHADONE HCL [Concomitant]
     Indication: ARTHRALGIA
  2. HALOPERIDOL [Concomitant]
     Indication: STRESS
  3. AMITRIPTYLINE HCL [Concomitant]
     Indication: INSOMNIA
     Dosage: 1 PILL, AT BEDTIME
  4. HUMIRA [Suspect]
     Indication: PSORIASIS
     Dates: start: 20111001
  5. BUSPIRONE HCL [Concomitant]
     Indication: PRODUCT USED FOR UNKNOWN INDICATION
  6. DIOVAN [Concomitant]
     Indication: HYPERTENSION

REACTIONS (4)
  - NODULE [None]
  - WRONG TECHNIQUE IN DRUG USAGE PROCESS [None]
  - PSORIASIS [None]
  - INJECTION SITE PAIN [None]
